FAERS Safety Report 10224332 (Version 1)
Quarter: 2014Q2

REPORT INFORMATION
  Report Type: Spontaneous
  Country: US (occurrence: US)
  Receive Date: 20140609
  Receipt Date: 20140609
  Transmission Date: 20141212
  Serious: No
  Sender: FDA-Public Use
  Company Number: US-PFIZER INC-2014153470

PATIENT
  Sex: Female

DRUGS (1)
  1. LYRICA [Suspect]
     Dosage: UNK

REACTIONS (5)
  - Abdominal discomfort [Unknown]
  - Weight increased [Unknown]
  - Dizziness [Unknown]
  - Blood pressure fluctuation [Recovering/Resolving]
  - Headache [Unknown]
